FAERS Safety Report 25556651 (Version 4)
Quarter: 2025Q4

REPORT INFORMATION
  Report Type: Report from Study
  Country: US (occurrence: US)
  Receive Date: 20250715
  Receipt Date: 20251204
  Transmission Date: 20260117
  Serious: Yes (Other)
  Sender: TAKEDA
  Company Number: US-TAKEDA-2025TUS053578

PATIENT
  Age: 46 Year
  Sex: Male

DRUGS (1)
  1. VEDOLIZUMAB [Suspect]
     Active Substance: VEDOLIZUMAB
     Indication: Product used for unknown indication
     Dosage: 300 MILLIGRAM

REACTIONS (7)
  - Haematochezia [Recovered/Resolved]
  - Diarrhoea [Unknown]
  - Epigastric discomfort [Unknown]
  - Product dose omission issue [Unknown]
  - Dyspepsia [Unknown]
  - Drug ineffective [Unknown]
  - Impaired quality of life [Unknown]
